FAERS Safety Report 10037914 (Version 2)
Quarter: 2014Q1

REPORT INFORMATION
  Report Type: Report from Study
  Country: CA (occurrence: CA)
  Receive Date: 20140326
  Receipt Date: 20140326
  Transmission Date: 20141002
  Serious: Yes (Other)
  Sender: FDA-Public Use
  Company Number: CA-UCBSA-084386

PATIENT
  Age: 37 Year
  Sex: Female
  Weight: 86.18 kg

DRUGS (7)
  1. CIMZIA [Suspect]
     Indication: SPONDYLITIS
     Route: 058
     Dates: start: 20130417, end: 20130515
  2. INDOMETHACIN [Concomitant]
     Indication: PAIN
     Route: 048
     Dates: start: 201301, end: 2013
  3. SYNTHROID [Concomitant]
     Indication: HYPOTHYROIDISM
     Route: 048
  4. EFFEXOR [Concomitant]
     Indication: ANXIETY
     Route: 048
  5. SEROQUEL [Concomitant]
     Indication: ANXIETY
     Dosage: ROUTE : QS
     Dates: end: 2013
  6. NEXIUM [Concomitant]
     Route: 048
     Dates: end: 2013
  7. IBUPROFENE [Concomitant]
     Indication: PAIN
     Route: 048

REACTIONS (4)
  - Premature delivery [Unknown]
  - Injection site swelling [Not Recovered/Not Resolved]
  - Fatigue [Not Recovered/Not Resolved]
  - Pregnancy [Not Recovered/Not Resolved]
